FAERS Safety Report 10253895 (Version 6)
Quarter: 2014Q3

REPORT INFORMATION
  Report Type: Spontaneous
  Country: IT (occurrence: IT)
  Receive Date: 20140623
  Receipt Date: 20140825
  Transmission Date: 20150326
  Serious: Yes (Hospitalization, Other)
  Sender: FDA-Public Use
  Company Number: IT-PFIZER INC-2014167778

PATIENT
  Age: 63 Year
  Sex: Male

DRUGS (11)
  1. CORLENTOR [Interacting]
     Active Substance: IVABRADINE HYDROCHLORIDE
     Indication: CARDIAC FAILURE
     Dosage: 3 DF, DAILY
     Route: 048
     Dates: start: 20140101, end: 20140510
  2. LUVION [Suspect]
     Active Substance: CANRENONE
     Indication: HYPERTENSION
     Dosage: 1 DF, DAILY
     Route: 048
     Dates: start: 20140101, end: 20140510
  3. CARDIOASPIRIN [Concomitant]
     Active Substance: ASPIRIN
     Dosage: 1 DF, UNK
     Route: 048
  4. ESKIM [Concomitant]
     Active Substance: OMEGA-3 FATTY ACIDS
     Dosage: 1 DF, UNK
  5. CLOZAPINE. [Concomitant]
     Active Substance: CLOZAPINE
     Dosage: 2 DF, UNK
     Route: 048
  6. BISOPROLOL FUMARATE. [Suspect]
     Active Substance: BISOPROLOL FUMARATE
     Indication: HYPERTENSION
     Dosage: 1 DF, DAILY
     Route: 048
     Dates: start: 20140101, end: 20140510
  7. LANSOX [Concomitant]
     Active Substance: LANSOPRAZOLE
     Dosage: 1 DF, UNK
     Route: 048
  8. TOTALIP [Concomitant]
     Active Substance: ATORVASTATIN
     Dosage: 1 DF, UNK
     Route: 048
  9. FUROSEMIDE. [Interacting]
     Active Substance: FUROSEMIDE
     Indication: HYPERTENSION
     Dosage: 1 DF, DAILY
     Route: 048
     Dates: start: 20140101, end: 20140510
  10. RAMIPRIL. [Suspect]
     Active Substance: RAMIPRIL
     Indication: HYPERTENSION
     Dosage: 1 DF, DAILY
     Route: 048
     Dates: start: 20140101, end: 20140510
  11. VANTAVO [Concomitant]
     Active Substance: ALENDRONATE SODIUM\CHOLECALCIFEROL
     Dosage: UNK

REACTIONS (9)
  - Syncope [Unknown]
  - Vertigo [Unknown]
  - Feeling abnormal [Unknown]
  - Drug interaction [Unknown]
  - Cerebrovascular accident [Unknown]
  - Disorientation [Unknown]
  - Insomnia [Unknown]
  - Bradycardia [Unknown]
  - Hypotension [Unknown]

NARRATIVE: CASE EVENT DATE: 20140510
